FAERS Safety Report 7056498-6 (Version None)
Quarter: 2010Q4

REPORT INFORMATION
  Report Type: 
  Country: None (occurrence: None)
  Receive Date: 20101021
  Receipt Date: 20101008
  Transmission Date: 20110411
  Serious: Yes (Other)
  Sender: FDA-Public Use
  Company Number: PT-PFIZER INC-2010127913

PATIENT
  Age: 60 Year
  Sex: Female

DRUGS (1)
  1. ZARATOR [Suspect]
     Dosage: 10 MG, 1X/DAY
     Route: 048

REACTIONS (3)
  - DIARRHOEA [None]
  - FAECES DISCOLOURED [None]
  - YELLOW SKIN [None]
